FAERS Safety Report 8387042-9 (Version None)
Quarter: 2012Q2

REPORT INFORMATION
  Report Type: 
  Country: None (occurrence: None)
  Receive Date: 20120525
  Receipt Date: 20120518
  Transmission Date: 20120825
  Serious: Yes (Hospitalization)
  Sender: FDA-Public Use
  Company Number: US-ACTELION-A-NJ2012-66150

PATIENT

DRUGS (4)
  1. ASPIRIN [Concomitant]
  2. VENTAVIS [Suspect]
     Indication: PULMONARY ARTERIAL HYPERTENSION
     Dosage: UNK
     Route: 055
     Dates: start: 20120203
  3. TRACLEER [Concomitant]
     Indication: PULMONARY ARTERIAL HYPERTENSION
     Dosage: UNK
     Route: 048
     Dates: start: 20111219
  4. PLAVIX [Concomitant]

REACTIONS (4)
  - CELLULITIS [None]
  - TINNITUS [None]
  - EAR DISCOMFORT [None]
  - CARDIAC OPERATION [None]
